FAERS Safety Report 23370054 (Version 2)
Quarter: 2024Q1

REPORT INFORMATION
  Report Type: Report from Study
  Country: KR (occurrence: KR)
  Receive Date: 20240105
  Receipt Date: 20240112
  Transmission Date: 20240410
  Serious: Yes (Other)
  Sender: FDA-Public Use
  Company Number: KR-TAKEDA-2024TUS000326

PATIENT
  Sex: Female

DRUGS (18)
  1. BRIGATINIB [Suspect]
     Active Substance: BRIGATINIB
     Indication: Non-small cell lung cancer
     Dosage: 90 MILLIGRAM, QD
     Route: 048
     Dates: start: 20220818, end: 20220901
  2. BRIGATINIB [Suspect]
     Active Substance: BRIGATINIB
     Dosage: 90 MILLIGRAM, QD
     Route: 048
     Dates: start: 20220904
  3. GASTER [Concomitant]
     Active Substance: FAMOTIDINE
     Indication: Gastrointestinal disorder prophylaxis
     Dosage: 40 MILLIGRAM
     Route: 048
     Dates: start: 20220818
  4. METOCLOPRAMIDE HYDROCHLORIDE [Concomitant]
     Active Substance: METOCLOPRAMIDE HYDROCHLORIDE
     Indication: Prophylaxis of nausea and vomiting
     Dosage: 15 MILLIGRAM
     Route: 048
     Dates: start: 20220818, end: 20231206
  5. KEPPRA [Concomitant]
     Active Substance: LEVETIRACETAM
     Indication: Seizure
     Dosage: 1000 MILLIGRAM
     Route: 048
     Dates: start: 20220821
  6. DEXAMETHASONE [Concomitant]
     Active Substance: DEXAMETHASONE
     Indication: Seizure
     Dosage: 4 MILLIGRAM
     Route: 042
     Dates: start: 20220822, end: 20220920
  7. HYDROCORTISONE SODIUM SUCCINATE [Concomitant]
     Active Substance: HYDROCORTISONE SODIUM SUCCINATE
     Indication: Seizure
     Dosage: 100 MILLIGRAM
     Route: 042
     Dates: start: 20220822, end: 20220822
  8. MANNITOL [Concomitant]
     Active Substance: MANNITOL
     Indication: Seizure
     Dosage: 400 MILLILITER
     Route: 042
     Dates: start: 20220825, end: 20220920
  9. NEOPAT [Concomitant]
     Indication: Seizure
     Dosage: 100 MILLIGRAM
     Route: 048
     Dates: start: 20220902
  10. TRAMADOL HYDROCHLORIDE [Concomitant]
     Active Substance: TRAMADOL HYDROCHLORIDE
     Indication: Pain
     Dosage: 100 MILLIGRAM
     Route: 042
     Dates: start: 20220820
  11. AMLODIPINE OROTATE [Concomitant]
     Active Substance: AMLODIPINE OROTATE
     Indication: Hypertension
     Dosage: 5 MILLIGRAM
     Route: 048
     Dates: start: 20220827
  12. ORNITHINE ASPARTATE [Concomitant]
     Active Substance: ORNITHINE ASPARTATE
     Indication: Hepatotoxicity
     Dosage: 2000 MILLIGRAM
     Route: 042
     Dates: start: 20220901, end: 20220920
  13. ZOLPIDEM TARTRATE [Concomitant]
     Active Substance: ZOLPIDEM TARTRATE
     Indication: Insomnia
     Dosage: 6.25 MILLIGRAM
     Route: 048
     Dates: start: 20220901, end: 20220913
  14. DAEWOONG URSA B [Concomitant]
     Indication: Hepatotoxicity
     Dosage: 300 MILLIGRAM
     Route: 048
     Dates: start: 20220906, end: 20221108
  15. CEFTRIAXONE [Concomitant]
     Active Substance: CEFTRIAXONE\CEFTRIAXONE SODIUM
     Indication: Urinary tract infection
     Dosage: 2 GRAM
     Route: 042
     Dates: start: 20220922, end: 20220924
  16. PROPACETAMOL HYDROCHLORIDE [Concomitant]
     Active Substance: PROPACETAMOL HYDROCHLORIDE
     Indication: Pyrexia
     Dosage: 1 GRAM
     Route: 050
     Dates: start: 20220922
  17. Ciplus [Concomitant]
     Indication: Urinary tract infection
     Dosage: 400 MILLIGRAM
     Route: 042
     Dates: start: 20220925, end: 20220926
  18. MEROPENEM [Concomitant]
     Active Substance: MEROPENEM
     Indication: Urinary tract infection
     Dosage: 100 MILLIGRAM
     Route: 042
     Dates: start: 20220926, end: 20220927

REACTIONS (1)
  - Diabetes insipidus [Recovered/Resolved]

NARRATIVE: CASE EVENT DATE: 20220930
